FAERS Safety Report 4436504-5 (Version None)
Quarter: 2004Q3

REPORT INFORMATION
  Report Type: 
  Country: None (occurrence: None)
  Receive Date: 20040830
  Receipt Date: 20040603
  Transmission Date: 20050211
  Serious: Yes (Hospitalization)
  Sender: FDA-Public Use
  Company Number: US-BRISTOL-MYERS SQUIBB COMPANY-12604971

PATIENT
  Age: 61 Year
  Sex: Female

DRUGS (2)
  1. ABILIFY [Suspect]
     Indication: DELUSION
     Dosage: 10 MG/DAY MAR-04; THEN 15 MG/DAY
     Route: 048
     Dates: start: 20040301, end: 20040601
  2. LICO3 [Concomitant]

REACTIONS (1)
  - PARKINSONISM [None]
